FAERS Safety Report 18316670 (Version 1)
Quarter: 2020Q3

REPORT INFORMATION
  Report Type: Spontaneous
  Country: US (occurrence: US)
  Receive Date: 20200928
  Receipt Date: 20200928
  Transmission Date: 20201103
  Serious: No
  Sender: FDA-Public Use
  Company Number: US-LUPIN PHARMACEUTICALS INC.-2020-03613

PATIENT
  Sex: Female

DRUGS (1)
  1. MINOCYCLINE HYDROCHLORIDE EXTENDED RELEASE TABLET [Suspect]
     Active Substance: MINOCYCLINE HYDROCHLORIDE
     Indication: PERIORAL DERMATITIS
     Dosage: UNK
     Route: 065

REACTIONS (1)
  - Therapeutic product effect delayed [Unknown]
